FAERS Safety Report 6682690-6 (Version None)
Quarter: 2010Q2

REPORT INFORMATION
  Report Type: 
  Country: None (occurrence: None)
  Receive Date: 20100415
  Receipt Date: 20100406
  Transmission Date: 20101027
  Serious: Yes (Other)
  Sender: FDA-Public Use
  Company Number: US-SANOFI-AVENTIS-2010SA020288

PATIENT
  Age: 55 Year
  Sex: Female
  Weight: 109 kg

DRUGS (24)
  1. LOZOL [Suspect]
     Route: 048
     Dates: start: 20020101
  2. CARAFATE [Suspect]
     Route: 048
  3. ZYRTEC [Suspect]
     Indication: MULTIPLE ALLERGIES
     Route: 065
     Dates: start: 20090101
  4. GABAPENTIN [Suspect]
     Indication: DIABETIC NEUROPATHY
     Dosage: 2 TABLETS TID
     Route: 065
     Dates: start: 20040101
  5. GABAPENTIN [Suspect]
     Indication: FIBROMYALGIA
     Dosage: 2 TABLETS TID
     Route: 065
     Dates: start: 20040101
  6. VICODIN [Suspect]
     Dosage: 7.5MG/325MG
     Route: 065
     Dates: start: 20060101
  7. ZANAFLEX [Suspect]
     Indication: MUSCLE SPASMS
     Route: 065
     Dates: start: 20090101
  8. VALSARTAN [Suspect]
     Route: 065
     Dates: start: 20020101
  9. BUPROPION HCL [Suspect]
     Indication: DEPRESSION
     Route: 065
  10. METFORMIN HCL [Suspect]
     Route: 065
  11. METFORMIN HCL [Suspect]
     Dosage: 50/500MG
     Route: 065
  12. KLONOPIN [Suspect]
     Indication: ANXIETY
     Route: 065
  13. KLONOPIN [Suspect]
     Route: 065
  14. PRILOSEC [Suspect]
     Route: 065
  15. AGGRENOX [Suspect]
     Route: 048
     Dates: start: 20091201
  16. FLONASE [Suspect]
     Dosage: 2 SPRAYS PER NOSTRIL
     Route: 065
  17. FLOVENT [Suspect]
     Indication: ASTHMA
     Dosage: 2 PUFFS
     Route: 065
  18. VENTOLIN [Suspect]
     Dosage: 2 PUFFS EVERY 2 HOURS
     Route: 065
  19. SUMATRIPTAN SUCCINATE [Suspect]
     Indication: MIGRAINE
     Route: 065
  20. NITROLINGUAL [Suspect]
     Indication: CHEST PAIN
     Route: 065
  21. EPIPEN [Suspect]
     Route: 062
  22. LORTAB [Suspect]
     Indication: DRUG USE FOR UNKNOWN INDICATION
     Route: 048
  23. SIMVASTATIN [Suspect]
     Indication: DRUG USE FOR UNKNOWN INDICATION
     Route: 065
  24. MULTI-VITAMINS [Suspect]
     Route: 065

REACTIONS (3)
  - CARDIAC DISORDER [None]
  - CONDITION AGGRAVATED [None]
  - MEMORY IMPAIRMENT [None]
